FAERS Safety Report 14655891 (Version 1)
Quarter: 2018Q1

REPORT INFORMATION
  Report Type: Spontaneous
  Country: US (occurrence: US)
  Receive Date: 20180319
  Receipt Date: 20180319
  Transmission Date: 20180509
  Serious: No
  Sender: FDA-Public Use
  Company Number: US-BEH-2018088885

PATIENT
  Sex: Female
  Weight: 45.35 kg

DRUGS (1)
  1. HIZENTRA [Suspect]
     Active Substance: HUMAN IMMUNOGLOBULIN G
     Indication: COMBINED IMMUNODEFICIENCY
     Dosage: 4 G, QW
     Route: 058
     Dates: start: 20170303

REACTIONS (2)
  - Oedema peripheral [Unknown]
  - Fluid retention [Unknown]
